FAERS Safety Report 15009753 (Version 1)
Quarter: 2018Q2

REPORT INFORMATION
  Report Type: Spontaneous
  Country: US (occurrence: US)
  Receive Date: 20180527
  Receipt Date: 20180527
  Transmission Date: 20180711
  Serious: Yes (Other)
  Sender: FDA-Public Use
  Company Number: None

PATIENT
  Age: 49 Year
  Sex: Male
  Weight: 74.25 kg

DRUGS (7)
  1. FLONASE [Concomitant]
     Active Substance: FLUTICASONE PROPIONATE
  2. TIGER BALM MUSCLE RUB PAIN RELIEVING [Suspect]
     Active Substance: CAMPHOR (SYNTHETIC)\MENTHOL\METHYL SALICYLATE
     Indication: MYALGIA
     Dosage: ?          QUANTITY:1 1;?
     Route: 061
     Dates: start: 20180512, end: 20180513
  3. ZYRTEC [Concomitant]
     Active Substance: CETIRIZINE HYDROCHLORIDE
  4. LISINOPRIL. [Concomitant]
     Active Substance: LISINOPRIL
  5. ALBUTEROL. [Concomitant]
     Active Substance: ALBUTEROL
  6. ONE A DAY VITAMINE [Concomitant]
  7. FISH OIL [Concomitant]
     Active Substance: FISH OIL

REACTIONS (5)
  - Pruritus [None]
  - Paraesthesia [None]
  - Rash [None]
  - Drug ineffective [None]
  - Insomnia [None]

NARRATIVE: CASE EVENT DATE: 20180516
